FAERS Safety Report 23513017 (Version 1)
Quarter: 2024Q1

REPORT INFORMATION
  Report Type: Spontaneous
  Country: AU (occurrence: AU)
  Receive Date: 20240212
  Receipt Date: 20240212
  Transmission Date: 20240409
  Serious: Yes (Hospitalization)
  Sender: FDA-Public Use
  Company Number: AU-MYLANLABS-2024M1013700

PATIENT
  Age: 20 Year
  Sex: Male

DRUGS (5)
  1. FLUOXETINE [Interacting]
     Active Substance: FLUOXETINE HYDROCHLORIDE
     Indication: Bipolar disorder
     Dosage: 40 MILLIGRAM
     Route: 065
  2. MELATONIN [Interacting]
     Active Substance: MELATONIN
     Indication: Bipolar disorder
     Dosage: 10 MILLIGRAM
     Route: 065
  3. LITHIUM [Interacting]
     Active Substance: LITHIUM
     Indication: Bipolar disorder
     Dosage: UNK
     Route: 065
  4. NABIXIMOLS [Interacting]
     Active Substance: NABIXIMOLS
     Indication: Product used for unknown indication
     Dosage: UNK (DOSE: DELTA9-TETRAHYDROCANNABINOL 28.5 MG/ML+ CANNABIDIOL {1MG/ML)
     Route: 048
  5. DRONABINOL [Interacting]
     Active Substance: DRONABINOL
     Indication: Product used for unknown indication
     Dosage: UNK
     Route: 065

REACTIONS (5)
  - Overdose [Unknown]
  - Generalised tonic-clonic seizure [Unknown]
  - Serotonin syndrome [Unknown]
  - Drug interaction [Unknown]
  - Off label use [Unknown]
